FAERS Safety Report 4479556-9 (Version None)
Quarter: 2004Q4

REPORT INFORMATION
  Report Type: 
  Country: None (occurrence: None)
  Receive Date: 20041015
  Receipt Date: 20041005
  Transmission Date: 20050328
  Serious: Yes (Death)
  Sender: FDA-Public Use
  Company Number: 04H-163-0276842-00

PATIENT
  Sex: Male

DRUGS (2)
  1. MEPERIDINE HCL [Suspect]
  2. MEPERIDINE HCL [Suspect]

REACTIONS (3)
  - ASPIRATION [None]
  - CONVULSION [None]
  - OVERDOSE [None]
